FAERS Safety Report 16982064 (Version 2)
Quarter: 2019Q4

REPORT INFORMATION
  Report Type: Spontaneous
  Country: US (occurrence: US)
  Receive Date: 20191101
  Receipt Date: 20191204
  Transmission Date: 20200122
  Serious: No
  Sender: FDA-Public Use
  Company Number: US-ASTRAZENECA-2019SF42243

PATIENT
  Age: 11181 Day
  Sex: Female
  Weight: 73 kg

DRUGS (2)
  1. PULMICORT FLEXHALER [Suspect]
     Active Substance: BUDESONIDE
     Indication: ASTHMA
     Route: 055
     Dates: start: 20191001, end: 20191014
  2. RESCUE INHALER [Concomitant]

REACTIONS (5)
  - Drug ineffective [Unknown]
  - Device defective [Unknown]
  - Drug dose omission by device [Unknown]
  - Exposure during pregnancy [Unknown]
  - Circumstance or information capable of leading to medication error [Recovered/Resolved]

NARRATIVE: CASE EVENT DATE: 20191001
